FAERS Safety Report 7060696-5 (Version None)
Quarter: 2010Q4

REPORT INFORMATION
  Report Type: 
  Country: None (occurrence: None)
  Receive Date: 20101025
  Receipt Date: 20101005
  Transmission Date: 20110411
  Serious: Yes (Hospitalization)
  Sender: FDA-Public Use
  Company Number: US-ROCHE-683018

PATIENT
  Sex: Female
  Weight: 97.3 kg

DRUGS (10)
  1. TOCILIZUMAB [Suspect]
     Indication: RHEUMATOID ARTHRITIS
     Dosage: FORM : INFUSION. LAST DOSE PRIOR TO SAE: 25 JAN 2010
     Route: 042
     Dates: start: 20091228
  2. PREDNISONE [Concomitant]
  3. METHOTREXATE [Concomitant]
  4. METHOTREXATE [Concomitant]
     Dates: start: 20090101
  5. NORVASC [Concomitant]
     Dates: start: 20030101
  6. ACCUPRIL [Concomitant]
     Dates: start: 20030101
  7. ASPIRIN [Concomitant]
     Dosage: REPORTED AS ASA.
  8. PREVACID [Concomitant]
     Dates: start: 20090301
  9. MULTI-VITAMIN [Concomitant]
     Dosage: REPORTED AS MVI.
  10. CALCIUM [Concomitant]

REACTIONS (1)
  - SYNCOPE [None]
